FAERS Safety Report 6385325-5 (Version None)
Quarter: 2009Q4

REPORT INFORMATION
  Report Type: 
  Country: None (occurrence: None)
  Receive Date: 20091002
  Receipt Date: 20080818
  Transmission Date: 20100525
  Serious: Yes (Other)
  Sender: FDA-Public Use
  Company Number: US-ASTRAZENECA-2008UW16800

PATIENT
  Age: 54 Year
  Sex: Female
  Weight: 59 kg

DRUGS (3)
  1. ARIMIDEX [Suspect]
     Indication: BREAST CANCER FEMALE
     Route: 048
     Dates: start: 20060601
  2. FOSAMAX [Concomitant]
  3. TWO BLOOD PRESSURE DRUGS [Concomitant]

REACTIONS (2)
  - HYPERTENSION [None]
  - OSTEOPOROSIS [None]
